FAERS Safety Report 13089765 (Version 4)
Quarter: 2017Q1

REPORT INFORMATION
  Report Type: Report from Study
  Country: FR (occurrence: FR)
  Receive Date: 20170105
  Receipt Date: 20170330
  Transmission Date: 20170428
  Serious: Yes (Other)
  Sender: FDA-Public Use
  Company Number: FR-CELGENEUS-FRA-2016127330

PATIENT
  Age: 78 Year
  Sex: Male
  Weight: 83 kg

DRUGS (11)
  1. FLECANIDE [Concomitant]
     Active Substance: FLECAINIDE
     Indication: ARRHYTHMIA
     Route: 065
     Dates: start: 20161229
  2. ALFUZOSINE [Concomitant]
     Active Substance: ALFUZOSIN HYDROCHLORIDE
     Indication: PROSTATISM
     Route: 065
     Dates: start: 20161229
  3. RITUXIMAB [Suspect]
     Active Substance: RITUXIMAB
     Route: 065
     Dates: start: 20141215, end: 20150417
  4. CARDENSIAL [Concomitant]
     Indication: ARRHYTHMIA
     Route: 065
     Dates: start: 20161229
  5. RITUXIMAB [Suspect]
     Active Substance: RITUXIMAB
     Indication: MANTLE CELL LYMPHOMA
     Dosage: 1400MG
     Route: 058
     Dates: start: 20160803
  6. XARELTO [Concomitant]
     Active Substance: RIVAROXABAN
     Indication: ARRHYTHMIA
     Route: 065
     Dates: start: 20161229
  7. CORTICOID [Concomitant]
     Active Substance: UNSPECIFIED INGREDIENT
     Indication: OBSTRUCTIVE AIRWAYS DISORDER
     Route: 065
     Dates: start: 20161229
  8. LENOGRASTIM [Concomitant]
     Active Substance: LENOGRASTIM
     Indication: PROPHYLAXIS
     Route: 065
     Dates: start: 20141221, end: 201506
  9. TINZAPARINE [Concomitant]
     Active Substance: TINZAPARIN
     Indication: ARRHYTHMIA
     Route: 065
     Dates: start: 20141216, end: 20150302
  10. OMEPRAZOLE. [Concomitant]
     Active Substance: OMEPRAZOLE
     Indication: GASTROOESOPHAGEAL REFLUX DISEASE
     Route: 065
     Dates: start: 20161229
  11. REVLIMID [Suspect]
     Active Substance: LENALIDOMIDE
     Indication: MANTLE CELL LYMPHOMA
     Dosage: 15MG
     Route: 048
     Dates: start: 20150804

REACTIONS (1)
  - Lentigo maligna [Recovered/Resolved]

NARRATIVE: CASE EVENT DATE: 20160927
